FAERS Safety Report 7652913-5 (Version None)
Quarter: 2011Q3

REPORT INFORMATION
  Report Type: 
  Country: None (occurrence: None)
  Receive Date: 20110722
  Receipt Date: 20101022
  Transmission Date: 20111222
  Serious: Yes (Hospitalization)
  Sender: FDA-Public Use
  Company Number: UTC-001553

PATIENT
  Age: 37 Year
  Sex: Female

DRUGS (9)
  1. COUMADIN [Concomitant]
  2. ALDACTONE [Concomitant]
  3. TRACLEER [Concomitant]
  4. REMODULIN [Suspect]
     Dosage: 96.48 UG/KG (0.067 UG/KG, 1 IN 1 MIN), INTRAVENOUS
     Route: 042
     Dates: start: 20090618
  5. THYROID TAB [Concomitant]
  6. LASIX [Concomitant]
  7. REVATIO [Concomitant]
  8. POTASSIUM CHLORIDE [Concomitant]
  9. SYNTHROID [Concomitant]

REACTIONS (1)
  - INFUSION SITE INFECTION [None]
